FAERS Safety Report 22922435 (Version 2)
Quarter: 2023Q4

REPORT INFORMATION
  Report Type: Spontaneous
  Country: JP (occurrence: JP)
  Receive Date: 20230908
  Receipt Date: 20231015
  Transmission Date: 20240110
  Serious: Yes (Death)
  Sender: FDA-Public Use
  Company Number: JP-GSK-JP2023JPN099110

PATIENT

DRUGS (1)
  1. DAPRODUSTAT [Suspect]
     Active Substance: DAPRODUSTAT
     Indication: Nephrogenic anaemia
     Dosage: 1 MG, 1D
     Route: 048
     Dates: start: 202305, end: 202307

REACTIONS (3)
  - Feeding disorder [Fatal]
  - Condition aggravated [Fatal]
  - Prescribed underdose [Unknown]
